FAERS Safety Report 9313798 (Version 2)
Quarter: 2013Q2

REPORT INFORMATION
  Report Type: Spontaneous
  Country: AU (occurrence: AU)
  Receive Date: 20130529
  Receipt Date: 20130627
  Transmission Date: 20140414
  Serious: Yes (Life-Threatening, Hospitalization, Other)
  Sender: FDA-Public Use
  Company Number: AU-AMGEN-AUSSP2012076541

PATIENT
  Age: 78 Year
  Sex: Male

DRUGS (19)
  1. XGEVA [Suspect]
     Indication: METASTASES TO BONE
     Dosage: 120 MG, QMO
     Route: 042
     Dates: start: 201208
  2. CALCITRIOL [Concomitant]
     Dosage: 2.25 MUG, QD
     Route: 048
  3. CALTRATE                           /00944201/ [Concomitant]
     Dosage: 1200 MG, QD
     Route: 048
  4. FENTANYL [Concomitant]
     Dosage: 100 MUG, UNK
  5. ASPIRIN [Concomitant]
     Dosage: 100 MUG, UNK
     Route: 048
  6. CELEBREX [Concomitant]
     Dosage: 200 MG, UNK
     Route: 048
  7. COVERSYL                           /00790702/ [Concomitant]
     Dosage: 5 MG, UNK
     Route: 048
  8. FRUSEMIDE                          /00032601/ [Concomitant]
     Dosage: 40 MG, UNK
     Route: 048
  9. ATORVASTATIN [Concomitant]
     Dosage: 40 MG, AS NECESSARY
  10. ESOMEPRAZOLE [Concomitant]
     Dosage: 20 MG, AS NECESSARY
  11. OSTELIN                            /00107901/ [Concomitant]
     Dosage: 2 UNK, AS NECESSARY
  12. PREDNISONE [Concomitant]
     Dosage: 10 MG, AS NECESSARY
  13. PRAMIN                             /00041902/ [Concomitant]
     Dosage: 10 MG, AS NECESSARY
  14. DOCETAXEL [Concomitant]
  15. ENDONE [Concomitant]
     Dosage: UNK UNK, AS NECESSARY
     Route: 048
  16. CABAZITAXEL [Concomitant]
     Indication: PROSTATE CANCER
     Dosage: 1 G, UNK
     Route: 042
  17. CALCIUM CARBONATE [Concomitant]
  18. CHOLECALCIFEROL [Concomitant]
     Dosage: 1000 IU, QD
  19. DURO-K [Concomitant]
     Dosage: UNK UNK, AS NECESSARY

REACTIONS (8)
  - Muscle twitching [Recovered/Resolved]
  - Chvostek^s sign [Recovered/Resolved]
  - Trousseau^s sign [Recovered/Resolved]
  - Electrocardiogram QT prolonged [Unknown]
  - Febrile neutropenia [Unknown]
  - Diarrhoea [Unknown]
  - Hypocalcaemia [Recovered/Resolved]
  - Hypophosphataemia [Unknown]
